FAERS Safety Report 25216133 (Version 4)
Quarter: 2025Q2

REPORT INFORMATION
  Report Type: Spontaneous
  Country: TW (occurrence: TW)
  Receive Date: 20250418
  Receipt Date: 20250516
  Transmission Date: 20250716
  Serious: Yes (Hospitalization, Other)
  Sender: BRISTOL-MYERS SQUIBB COMPANY
  Company Number: TW-BRISTOL-MYERS SQUIBB COMPANY-2025-055190

PATIENT
  Age: 43 Year
  Sex: Male
  Weight: 77.1 kg

DRUGS (4)
  1. OPDIVO [Suspect]
     Active Substance: NIVOLUMAB
     Indication: Renal cell carcinoma
     Dosage: OPDIVO (NIVOLUMAB) INJECTION 10MG/ML NIVOLUMAB
     Route: 042
     Dates: start: 20241004, end: 20241118
  2. IPILIMUMAB [Suspect]
     Active Substance: IPILIMUMAB
     Indication: Renal cell carcinoma
     Dates: start: 20241004
  3. IPILIMUMAB [Suspect]
     Active Substance: IPILIMUMAB
     Dates: start: 20241025
  4. CABOZANTINIB [Suspect]
     Active Substance: CABOZANTINIB
     Indication: Renal cell carcinoma
     Dosage: CABOMETYX FILM-COATED TABLET 40 MG CABOZANTINIB (S) MALATE
     Route: 048
     Dates: start: 20241118

REACTIONS (1)
  - Stevens-Johnson syndrome [Recovered/Resolved with Sequelae]

NARRATIVE: CASE EVENT DATE: 20241209
